FAERS Safety Report 22323294 (Version 1)
Quarter: 2023Q2

REPORT INFORMATION
  Report Type: Other
  Country: GB (occurrence: GB)
  Receive Date: 20230516
  Receipt Date: 20230516
  Transmission Date: 20230721
  Serious: Yes (Other)
  Sender: FDA-Public Use
  Company Number: None

PATIENT
  Age: 55 Year
  Sex: Male
  Weight: 86 kg

DRUGS (6)
  1. COLCHICINE [Suspect]
     Active Substance: COLCHICINE
     Indication: Product used for unknown indication
     Dosage: UNK
     Route: 065
  2. ASPIRIN [Concomitant]
     Active Substance: ASPIRIN
     Indication: Myocardial infarction
     Dosage: UNK
     Route: 065
     Dates: start: 20130605
  3. ATORVASTATIN [Concomitant]
     Active Substance: ATORVASTATIN
     Indication: Myocardial infarction
     Dosage: UNK
     Route: 065
     Dates: start: 20130605
  4. NAPROXEN [Concomitant]
     Active Substance: NAPROXEN
     Indication: Gout
     Dosage: UNK
     Route: 065
     Dates: start: 20230401, end: 20230401
  5. OMEPRAZOLE [Concomitant]
     Active Substance: OMEPRAZOLE
     Indication: Product used for unknown indication
     Dosage: UNK
     Route: 065
     Dates: start: 20230401, end: 20230401
  6. RAMIPRIL [Concomitant]
     Active Substance: RAMIPRIL
     Indication: Myocardial infarction
     Dosage: UNK
     Route: 065
     Dates: start: 20130606

REACTIONS (7)
  - Mouth ulceration [None]
  - Mouth swelling [Recovered/Resolved]
  - Swollen tongue [Recovered/Resolved]
  - Peripheral swelling [Recovered/Resolved]
  - Pharyngeal swelling [Recovered/Resolved]
  - Lip swelling [Unknown]
  - Pyrexia [Recovered/Resolved]

NARRATIVE: CASE EVENT DATE: 20230401
